FAERS Safety Report 5457258-X (Version None)
Quarter: 2007Q3

REPORT INFORMATION
  Report Type: 
  Country: None (occurrence: None)
  Receive Date: 20070918
  Receipt Date: 20070314
  Transmission Date: 20080115
  Serious: No
  Sender: FDA-Public Use
  Company Number: US-ASTRAZENECA-2007UW02285

PATIENT
  Age: 52 Year
  Sex: Female
  Weight: 123.6 kg

DRUGS (1)
  1. SEROQUEL [Suspect]
     Indication: BIPOLAR DISORDER
     Route: 048
     Dates: start: 20070125, end: 20070129

REACTIONS (2)
  - CRYING [None]
  - SOMNOLENCE [None]
